FAERS Safety Report 19436691 (Version 1)
Quarter: 2021Q2

REPORT INFORMATION
  Report Type: Other
  Country: US (occurrence: US)
  Receive Date: 20210618
  Receipt Date: 20210618
  Transmission Date: 20210717
  Serious: Yes (Life-Threatening, Hospitalization, Other)
  Sender: FDA-Public Use
  Company Number: US-P+L DEVELOPMENTS OF NEWYORK CORPORATION-2112862

PATIENT
  Age: 17 Year
  Sex: Female

DRUGS (2)
  1. VODKA (ETHANOL) [Suspect]
     Active Substance: ALCOHOL
     Route: 048
  2. IBUPROFEN. [Suspect]
     Active Substance: IBUPROFEN
     Indication: PRODUCT USED FOR UNKNOWN INDICATION
     Route: 048

REACTIONS (9)
  - Overdose [Unknown]
  - Hypotension [Recovered/Resolved]
  - Suicide attempt [Unknown]
  - Metabolic acidosis [Unknown]
  - Depressed level of consciousness [Recovering/Resolving]
  - Lethargy [Unknown]
  - Seizure like phenomena [Unknown]
  - Renal failure [Recovered/Resolved]
  - Toxicity to various agents [Recovered/Resolved]
